FAERS Safety Report 12909980 (Version 1)
Quarter: 2016Q4

REPORT INFORMATION
  Report Type: Report from Study
  Country: JP (occurrence: JP)
  Receive Date: 20161104
  Receipt Date: 20161104
  Transmission Date: 20170207
  Serious: Yes (Death)
  Sender: FDA-Public Use
  Company Number: JP-ROCHE-1850661

PATIENT

DRUGS (1)
  1. RITUXIMAB [Suspect]
     Active Substance: RITUXIMAB
     Indication: B-CELL LYMPHOMA
     Dosage: EIGHT CONSEQUENT INFUSIONS?LIQUID PREPARATION CONTAINING 10 MG/ML RITUXIMAB IN A 10-ML VIAL,
     Route: 042

REACTIONS (1)
  - Neutropenia [Fatal]
